FAERS Safety Report 6743414-7 (Version None)
Quarter: 2010Q2

REPORT INFORMATION
  Report Type: 
  Country: None (occurrence: None)
  Receive Date: 20100527
  Receipt Date: 20100513
  Transmission Date: 20101027
  Serious: Yes (Hospitalization, Other)
  Sender: FDA-Public Use
  Company Number: US-ELI_LILLY_AND_COMPANY-US201005004657

PATIENT
  Sex: Female

DRUGS (3)
  1. FORTEO [Suspect]
     Indication: OSTEOPOROSIS
     Dosage: 20 UG, DAILY (1/D)
     Dates: start: 20081001
  2. CALCIUM CARBONATE [Concomitant]
     Dosage: 100 MG, DAILY (1/D)
     Dates: start: 20090101
  3. KEPPRA [Concomitant]
     Dosage: 100 MG, 2/D

REACTIONS (5)
  - CONVULSION [None]
  - FALL [None]
  - JOINT DISLOCATION [None]
  - LOSS OF CONTROL OF LEGS [None]
  - VITAMIN D DECREASED [None]
